FAERS Safety Report 15983616 (Version 1)
Quarter: 2019Q1

REPORT INFORMATION
  Report Type: Spontaneous
  Country: US (occurrence: US)
  Receive Date: 20190220
  Receipt Date: 20190220
  Transmission Date: 20190418
  Serious: No
  Sender: FDA-Public Use
  Company Number: US-NOVITIUM PHARMA LLC-2018-US-000143

PATIENT
  Sex: Female

DRUGS (1)
  1. TRIHEXYPHENIDYL HYDROCHLORIDE. [Suspect]
     Active Substance: TRIHEXYPHENIDYL HYDROCHLORIDE
     Indication: PRODUCT USED FOR UNKNOWN INDICATION
     Dosage: TAKING ONE AND HALF TABLET FOR SEVERAL YEARS
     Route: 065

REACTIONS (1)
  - Wrong technique in product usage process [Unknown]
